FAERS Safety Report 8099019 (Version 3)
Quarter: 2013Q3

REPORT INFORMATION
  Report Type: Spontaneous
  Country: US (occurrence: US)
  Receive Date: 20110819
  Receipt Date: 20130925
  Transmission Date: 20140515
  Serious: Yes (Hospitalization, Other)
  Sender: FDA-Public Use
  Company Number: US-ASTRAZENECA-2011SE47746

PATIENT
  Age: 57 Year
  Sex: Male
  Weight: 85.3 kg

DRUGS (14)
  1. CRESTOR [Suspect]
     Indication: BLOOD CHOLESTEROL ABNORMAL
     Route: 048
     Dates: start: 2005
  2. LISINOPRIL [Suspect]
     Route: 048
  3. METFORMIN [Concomitant]
     Route: 048
  4. ALBUTEROL NEBULISER [Concomitant]
  5. PREDNISONE [Concomitant]
  6. NYSTATIN [Concomitant]
  7. LEVOFLOXACIN [Concomitant]
  8. PREVACID [Concomitant]
  9. TRICOR [Concomitant]
  10. ACTOS [Concomitant]
  11. GLUCOPHAGE [Concomitant]
  12. TEMAZEPAM [Concomitant]
     Route: 048
  13. ADVAIR DISKUS [Concomitant]
     Dosage: 250 MG- 50 MG, 1 UNIT INHALE BID
     Route: 055
  14. FOLIC ACID [Concomitant]
     Route: 048

REACTIONS (15)
  - Lung squamous cell carcinoma metastatic [Unknown]
  - Accident at work [Unknown]
  - Inguinal hernia [Unknown]
  - Arthropathy [Unknown]
  - Essential hypertension [Unknown]
  - Hypertension [Unknown]
  - Type V hyperlipidaemia [Unknown]
  - Osteoarthritis [Unknown]
  - Autonomic neuropathy [Unknown]
  - Gouty arthritis [Unknown]
  - Chronic obstructive pulmonary disease [Unknown]
  - Lung disorder [Unknown]
  - Obesity [Unknown]
  - Radiation pneumonitis [Unknown]
  - Diabetes mellitus [Unknown]
